FAERS Safety Report 5468462-9 (Version None)
Quarter: 2007Q3

REPORT INFORMATION
  Report Type: 
  Country: None (occurrence: None)
  Receive Date: 20070926
  Receipt Date: 20070604
  Transmission Date: 20080115
  Serious: No
  Sender: FDA-Public Use
  Company Number: US-BRISTOL-MYERS SQUIBB COMPANY-13802350

PATIENT
  Sex: Female
  Weight: 55 kg

DRUGS (5)
  1. ORENCIA [Suspect]
     Indication: RHEUMATOID ARTHRITIS
     Route: 042
     Dates: start: 20070221
  2. METHOTREXATE BRAND UNKNOWN [Concomitant]
  3. PREDNISONE [Concomitant]
  4. BETAPACE [Concomitant]
  5. BONIVA [Concomitant]

REACTIONS (6)
  - ARTHRALGIA [None]
  - DRY SKIN [None]
  - FATIGUE [None]
  - JOINT SWELLING [None]
  - OEDEMA PERIPHERAL [None]
  - SKIN EXFOLIATION [None]
